FAERS Safety Report 15547248 (Version 1)
Quarter: 2018Q4

REPORT INFORMATION
  Report Type: Spontaneous
  Country: CA (occurrence: CA)
  Receive Date: 20181024
  Receipt Date: 20181024
  Transmission Date: 20190205
  Serious: Yes (Life-Threatening)
  Sender: FDA-Public Use
  Company Number: CA-JNJFOC-20181029833

PATIENT
  Age: 29 Year
  Sex: Male
  Weight: 95 kg

DRUGS (1)
  1. INVEGA SUSTENNA [Suspect]
     Active Substance: PALIPERIDONE PALMITATE
     Indication: PSYCHOTIC DISORDER
     Route: 030

REACTIONS (5)
  - Dizziness [Unknown]
  - Palpitations [Unknown]
  - Vision blurred [Unknown]
  - Headache [Unknown]
  - Hypokinesia [Unknown]
